FAERS Safety Report 26110884 (Version 1)
Quarter: 2025Q4

REPORT INFORMATION
  Report Type: Report from Study
  Country: ZA (occurrence: ZA)
  Receive Date: 20251202
  Receipt Date: 20251202
  Transmission Date: 20260118
  Serious: Yes (Other)
  Sender: ROCHE
  Company Number: ZA-ROCHE-10000116909

PATIENT
  Sex: Female

DRUGS (2)
  1. OCREVUS [Suspect]
     Active Substance: OCRELIZUMAB
     Indication: Relapsing-remitting multiple sclerosis
     Dosage: THERE AFTER 600MG EVERY 6 MONTHS
     Route: 042
     Dates: start: 20221118
  2. OCREVUS [Suspect]
     Active Substance: OCRELIZUMAB
     Dosage: THEREAFTER 600MG EVERY 6 MONTHS
     Route: 042
     Dates: start: 20221118

REACTIONS (7)
  - Intervertebral disc space narrowing [Unknown]
  - Intervertebral disc protrusion [Unknown]
  - Conus medullaris syndrome [Unknown]
  - Magnetic resonance imaging spinal abnormal [Unknown]
  - Intervertebral disc protrusion [Unknown]
  - Intervertebral disc annular tear [Unknown]
  - Cervical spinal stenosis [Unknown]
